FAERS Safety Report 18809450 (Version 1)
Quarter: 2021Q1

REPORT INFORMATION
  Report Type: Spontaneous
  Country: US (occurrence: US)
  Receive Date: 20210129
  Receipt Date: 20210129
  Transmission Date: 20210419
  Serious: Yes (Other)
  Sender: FDA-Public Use
  Company Number: US-PURDUE-USA-2020-0201524

PATIENT
  Sex: Male

DRUGS (3)
  1. MORPHINE SULFATE (SIMILAR TO NDA 19?516) [Suspect]
     Active Substance: MORPHINE SULFATE
     Indication: PRODUCT USED FOR UNKNOWN INDICATION
     Dosage: UNK
     Route: 065
  2. TRAMADOL CR TABLETS (RHODES 21?745) [Suspect]
     Active Substance: TRAMADOL
     Indication: PRODUCT USED FOR UNKNOWN INDICATION
     Dosage: UNK
     Route: 048
  3. VICODIN [Suspect]
     Active Substance: ACETAMINOPHEN\HYDROCODONE BITARTRATE
     Indication: PRODUCT USED FOR UNKNOWN INDICATION
     Dosage: UNK
     Route: 065

REACTIONS (14)
  - Drug abuse [Unknown]
  - Tooth loss [Unknown]
  - Depression [Unknown]
  - Respiratory disorder [Unknown]
  - Diarrhoea [Unknown]
  - Loss of libido [Unknown]
  - Dyspnoea [Unknown]
  - Drug dependence [Unknown]
  - Insomnia [Unknown]
  - Withdrawal syndrome [Unknown]
  - Somnolence [Unknown]
  - Constipation [Unknown]
  - Tooth abscess [Unknown]
  - Erectile dysfunction [Unknown]
